FAERS Safety Report 6594028-3 (Version None)
Quarter: 2010Q1

REPORT INFORMATION
  Report Type: 
  Country: None (occurrence: None)
  Receive Date: 20100222
  Receipt Date: 20100217
  Transmission Date: 20100710
  Serious: Yes (Life-Threatening)
  Sender: FDA-Public Use
  Company Number: US-ASTRAZENECA-2010SE07204

PATIENT
  Age: 41 Year
  Sex: Male

DRUGS (9)
  1. SYMBICORT [Suspect]
     Dosage: 160/4.5, TWO PUFFS, ONCE DAILY.
     Route: 055
     Dates: start: 20100209
  2. CRESTOR [Concomitant]
     Route: 048
  3. PLAVIX [Concomitant]
     Route: 065
  4. COREG [Concomitant]
     Route: 065
  5. BENICAR [Concomitant]
     Route: 065
  6. CELEXA [Concomitant]
     Route: 065
  7. FISH OIL [Concomitant]
     Route: 065
  8. ASPIRIN [Concomitant]
     Route: 065
  9. VENTOLIN HFA [Concomitant]
     Route: 055

REACTIONS (1)
  - GENERALISED OEDEMA [None]
